FAERS Safety Report 23513982 (Version 1)
Quarter: 2024Q1

REPORT INFORMATION
  Report Type: Spontaneous
  Country: FR (occurrence: FR)
  Receive Date: 20240212
  Receipt Date: 20240212
  Transmission Date: 20240410
  Serious: Yes (Hospitalization)
  Sender: FDA-Public Use
  Company Number: None

PATIENT
  Age: 35 Year
  Sex: Male
  Weight: 55.7 kg

DRUGS (3)
  1. CLARITHROMYCIN [Suspect]
     Active Substance: CLARITHROMYCIN
     Indication: Mycobacterium avium complex infection
     Dosage: UNK
     Route: 065
     Dates: start: 20231222, end: 20240102
  2. ETHAMBUTOL HYDROCHLORIDE [Suspect]
     Active Substance: ETHAMBUTOL HYDROCHLORIDE
     Indication: Mycobacterium avium complex infection
     Dosage: UNK
     Route: 065
     Dates: start: 20231222, end: 20240102
  3. RIFABUTIN [Suspect]
     Active Substance: RIFABUTIN
     Indication: Mycobacterium avium complex infection
     Dosage: 600 MILLIGRAM, QD, 600 MG/24H
     Route: 048
     Dates: start: 20231222, end: 20240102

REACTIONS (1)
  - Immune thrombocytopenia [Recovering/Resolving]

NARRATIVE: CASE EVENT DATE: 20231225
